FAERS Safety Report 24754311 (Version 1)
Quarter: 2024Q4

REPORT INFORMATION
  Report Type: Spontaneous
  Country: US (occurrence: US)
  Receive Date: 20241219
  Receipt Date: 20241219
  Transmission Date: 20250115
  Serious: Yes (Death, Other)
  Sender: SERVIER
  Company Number: None

PATIENT
  Age: 3 Year
  Sex: Male
  Weight: 13.8 kg

DRUGS (3)
  1. ASPARLAS [Suspect]
     Active Substance: CALASPARGASE PEGOL-MKNL
     Indication: B precursor type acute leukaemia
     Dosage: 1522 U, ONE DOSE
     Route: 042
     Dates: start: 20240413, end: 20240413
  2. DEXAMETHASONE [Suspect]
     Active Substance: DEXAMETHASONE
     Indication: B precursor type acute leukaemia
     Dosage: 4 MG, QD
     Route: 048
     Dates: start: 20240410, end: 20240504
  3. VINCRISTINE SULFATE [Suspect]
     Active Substance: VINCRISTINE SULFATE
     Indication: B precursor type acute leukaemia
     Dosage: UNK UNK, 1X/WEEK
     Route: 042
     Dates: start: 20240410, end: 20240501

REACTIONS (5)
  - Gastrointestinal necrosis [Fatal]
  - Peritonitis [Fatal]
  - Cardiac arrest [Fatal]
  - Enterocolitis [Fatal]
  - Dyspnoea [Not Recovered/Not Resolved]

NARRATIVE: CASE EVENT DATE: 20240504
